FAERS Safety Report 24578119 (Version 1)
Quarter: 2024Q4

REPORT INFORMATION
  Report Type: Spontaneous
  Country: AR (occurrence: AR)
  Receive Date: 20241104
  Receipt Date: 20241104
  Transmission Date: 20250115
  Serious: Yes (Hospitalization, Other)
  Sender: BRISTOL-MYERS SQUIBB COMPANY
  Company Number: AR-BRISTOL-MYERS SQUIBB COMPANY-2024-170941

PATIENT
  Age: 55 Year
  Sex: Male

DRUGS (1)
  1. NIVOLUMAB [Suspect]
     Active Substance: NIVOLUMAB
     Indication: Product used for unknown indication
     Dosage: DOSE REPORTED AS 3

REACTIONS (3)
  - Encephalitis [Unknown]
  - Respiratory failure [Unknown]
  - Paralysis [Unknown]
